FAERS Safety Report 11868757 (Version 2)
Quarter: 2016Q1

REPORT INFORMATION
  Report Type: Spontaneous
  Country: GB (occurrence: GB)
  Receive Date: 20151225
  Receipt Date: 20160109
  Transmission Date: 20160526
  Serious: Yes (Hospitalization, Other)
  Sender: FDA-Public Use
  Company Number: GB-ACCORD-036516

PATIENT
  Age: 72 Year
  Sex: Male

DRUGS (13)
  1. AMLODIPINE [Concomitant]
     Active Substance: AMLODIPINE BESYLATE
  2. LACTULOSE. [Concomitant]
     Active Substance: LACTULOSE
  3. LANSOPRAZOLE. [Concomitant]
     Active Substance: LANSOPRAZOLE
  4. FLUCLOXACILLIN [Concomitant]
     Active Substance: FLUCLOXACILLIN
  5. FUROSEMIDE. [Concomitant]
     Active Substance: FUROSEMIDE
  6. DOXAZOSIN [Concomitant]
     Active Substance: DOXAZOSIN\DOXAZOSIN MESYLATE
  7. FENBID [Concomitant]
     Active Substance: IBUPROFEN
  8. IRON [Concomitant]
     Active Substance: IRON
  9. ATORVASTATIN [Concomitant]
     Active Substance: ATORVASTATIN
  10. NAPROXEN. [Suspect]
     Active Substance: NAPROXEN
     Indication: GOUT
     Route: 048
     Dates: start: 20151203, end: 20151207
  11. PREGABALIN. [Concomitant]
     Active Substance: PREGABALIN
  12. CLOPIDOGREL [Suspect]
     Active Substance: CLOPIDOGREL BISULFATE
     Indication: PROPHYLAXIS
     Route: 048
     Dates: end: 20151207
  13. ZOMORPH [Concomitant]
     Active Substance: MORPHINE SULFATE

REACTIONS (2)
  - Upper gastrointestinal haemorrhage [Recovering/Resolving]
  - Gastritis [Unknown]

NARRATIVE: CASE EVENT DATE: 20151207
